FAERS Safety Report 21452949 (Version 4)
Quarter: 2022Q4

REPORT INFORMATION
  Report Type: Report from Study
  Country: JP (occurrence: JP)
  Receive Date: 20221013
  Receipt Date: 20221109
  Transmission Date: 20230112
  Serious: Yes (Death, Hospitalization)
  Sender: FDA-Public Use
  Company Number: JP-Eisai-202209084_PENT_C_1

PATIENT
  Age: 61 Year
  Sex: Male
  Weight: 96 kg

DRUGS (27)
  1. E-7386 [Suspect]
     Active Substance: E-7386
     Indication: Hepatocellular carcinoma
     Route: 048
     Dates: start: 20220916, end: 20220920
  2. E-7386 [Suspect]
     Active Substance: E-7386
     Route: 048
     Dates: start: 20220926, end: 20221004
  3. LENVATINIB [Suspect]
     Active Substance: LENVATINIB
     Indication: Hepatocellular carcinoma
     Route: 048
     Dates: start: 20220926, end: 20221004
  4. AMINO ACIDS, SOURCE UNSPECIFIED [Concomitant]
     Active Substance: AMINO ACIDS, SOURCE UNSPECIFIED
     Indication: Hepatic cirrhosis
     Dates: start: 202112, end: 20221005
  5. ZINC [Concomitant]
     Active Substance: ZINC
     Indication: Zinc deficiency
     Dates: start: 202112, end: 20221005
  6. LACTULOSE [Concomitant]
     Active Substance: LACTULOSE
     Indication: Hepatic cirrhosis
     Dates: start: 202112, end: 20221005
  7. SODIUM FERROUS CITRATE [Concomitant]
     Active Substance: SODIUM FERROUS CITRATE
     Indication: Anaemia
     Dates: start: 202112, end: 20221005
  8. UNSPECIFIED INGREDIENT [Concomitant]
     Active Substance: UNSPECIFIED INGREDIENT
     Indication: Hepatic cirrhosis
     Dates: start: 202112, end: 20221005
  9. RIFAXIMIN [Concomitant]
     Active Substance: RIFAXIMIN
     Indication: Hepatic cirrhosis
     Dates: start: 202112, end: 20221005
  10. LOXOPROFEN SODIUM [Concomitant]
     Active Substance: LOXOPROFEN SODIUM
     Indication: Pain
     Dates: start: 201705, end: 20221005
  11. XYZAL [Concomitant]
     Active Substance: LEVOCETIRIZINE DIHYDROCHLORIDE
     Indication: Pruritus
     Dates: start: 202203, end: 20221005
  12. VONOPRAZAN FUMARATE [Concomitant]
     Active Substance: VONOPRAZAN FUMARATE
     Indication: Prophylaxis against gastrointestinal ulcer
     Dates: start: 201705, end: 20221005
  13. LIVALO [Concomitant]
     Active Substance: PITAVASTATIN CALCIUM
     Indication: Hyperlipidaemia
     Dates: start: 201705, end: 20221005
  14. URSO [Concomitant]
     Active Substance: URSODIOL
     Indication: Hepatic cirrhosis
     Dates: start: 201705, end: 20221005
  15. MICARDIS [Concomitant]
     Active Substance: TELMISARTAN
     Indication: Hypertension
     Dates: start: 201705, end: 20221005
  16. CALBLOCK [Concomitant]
     Active Substance: AZELNIDIPINE
     Indication: Hypertension
     Dates: start: 201705, end: 20221005
  17. POSTERISAN [Concomitant]
     Indication: Anal fistula
     Dates: start: 201705, end: 20221005
  18. RAMOSETRON HYDROCHLORIDE [Concomitant]
     Active Substance: RAMOSETRON HYDROCHLORIDE
     Indication: Nausea
     Dates: start: 20220916, end: 20221005
  19. LOPERAMIDE HYDROCHLORIDE [Concomitant]
     Active Substance: LOPERAMIDE HYDROCHLORIDE
     Indication: Diarrhoea
     Dates: start: 20220920, end: 20221005
  20. LOPERAMIDE HYDROCHLORIDE [Concomitant]
     Active Substance: LOPERAMIDE HYDROCHLORIDE
     Indication: Aortic aneurysm
  21. AZUNOL [Concomitant]
     Indication: Anal fistula
     Dates: start: 20221001, end: 20221005
  22. MIYA-BM [Concomitant]
     Active Substance: CLOSTRIDIUM BUTYRICUM SPORES STRAIN M-55
     Indication: Diarrhoea
     Dates: start: 20220920, end: 20221005
  23. METOCLOPRAMIDE [Concomitant]
     Active Substance: METOCLOPRAMIDE
     Indication: Nausea
     Dates: start: 20220927, end: 20221005
  24. TRAMADOL [Concomitant]
     Active Substance: TRAMADOL
     Indication: Pain
     Dates: start: 20220912, end: 20221005
  25. ZINC OXIDE [Concomitant]
     Active Substance: ZINC OXIDE
     Indication: Anal fistula
     Dates: start: 20220912, end: 20221005
  26. HEPARINOID [Concomitant]
     Indication: Pruritus
     Route: 061
     Dates: start: 202112, end: 20221005
  27. BETAMETHASONE BUTYRATE PROPIONATE [Concomitant]
     Active Substance: BETAMETHASONE BUTYRATE PROPIONATE
     Indication: Pruritus
     Route: 061
     Dates: start: 202112, end: 20221005

REACTIONS (1)
  - Acute kidney injury [Fatal]

NARRATIVE: CASE EVENT DATE: 20221006
